FAERS Safety Report 5366820-4 (Version None)
Quarter: 2007Q2

REPORT INFORMATION
  Report Type: 
  Country: None (occurrence: None)
  Receive Date: 20070622
  Receipt Date: 20070227
  Transmission Date: 20071010
  Serious: No
  Sender: FDA-Public Use
  Company Number: A0639510A

PATIENT
  Age: 28 Year
  Sex: Female
  Weight: 70 kg

DRUGS (1)
  1. ZYBAN [Suspect]
     Dosage: 150MG TWICE PER DAY
     Route: 048

REACTIONS (3)
  - ARTHRALGIA [None]
  - SWOLLEN TONGUE [None]
  - URTICARIA [None]
